FAERS Safety Report 8943839 (Version 1)
Quarter: 2012Q4

REPORT INFORMATION
  Report Type: 
  Country: PL (occurrence: PL)
  Receive Date: 20121204
  Receipt Date: 20121204
  Transmission Date: 20130627
  Serious: Yes (Other)
  Sender: FDA-Public Use
  Company Number: PHHY2012PL110068

PATIENT
  Sex: Female

DRUGS (5)
  1. SIMULECT [Suspect]
     Indication: RENAL TRANSPLANT
  2. TACROLIMUS [Concomitant]
     Indication: RENAL TRANSPLANT
     Dosage: 12 mg, UNK
  3. METYPRED//METHYLPREDNISOLONE [Concomitant]
     Indication: RENAL TRANSPLANT
     Dosage: 16 mg, UNK
  4. ACYCLOVIR [Concomitant]
  5. CERTICAN [Concomitant]
     Dosage: 3 mg, UNK

REACTIONS (1)
  - Complications of transplanted kidney [Unknown]
